FAERS Safety Report 9457334 (Version 9)
Quarter: 2015Q3

REPORT INFORMATION
  Report Type: Report from Study
  Country: US (occurrence: US)
  Receive Date: 20130814
  Receipt Date: 20150923
  Transmission Date: 20151125
  Serious: Yes (Hospitalization, Other)
  Sender: FDA-Public Use
  Company Number: US-ALEXION-A201301877

PATIENT

DRUGS (1)
  1. SOLIRIS [Suspect]
     Active Substance: ECULIZUMAB
     Indication: PAROXYSMAL NOCTURNAL HAEMOGLOBINURIA
     Dosage: 900 MG, Q2W
     Route: 042
     Dates: start: 20080922

REACTIONS (23)
  - Dyspnoea [Recovering/Resolving]
  - Clostridium difficile colitis [Unknown]
  - Chronic obstructive pulmonary disease [Recovering/Resolving]
  - Gastrointestinal haemorrhage [Unknown]
  - Dyspnoea exertional [Not Recovered/Not Resolved]
  - Unevaluable event [Unknown]
  - Infection [Recovered/Resolved]
  - Cognitive disorder [Unknown]
  - Bronchitis [Recovering/Resolving]
  - Abdominal pain [Not Recovered/Not Resolved]
  - Dyspnoea [Recovering/Resolving]
  - Wheezing [Recovering/Resolving]
  - Vomiting [Unknown]
  - Anaemia [Unknown]
  - Pyrexia [Unknown]
  - Blood count abnormal [Unknown]
  - Faeces discoloured [Unknown]
  - Fatigue [Not Recovered/Not Resolved]
  - Cough [Recovering/Resolving]
  - Malaise [Unknown]
  - Bronchitis chronic [Recovering/Resolving]
  - Bronchitis chronic [Unknown]
  - Abdominal pain upper [Unknown]

NARRATIVE: CASE EVENT DATE: 201308
